FAERS Safety Report 7010230-0 (Version None)
Quarter: 2010Q3

REPORT INFORMATION
  Report Type: 
  Country: None (occurrence: None)
  Receive Date: 20100923
  Receipt Date: 20100914
  Transmission Date: 20110219
  Serious: Yes (Death, Other)
  Sender: FDA-Public Use
  Company Number: GXKR2010GB09725

PATIENT
  Age: 83 Year
  Sex: Male

DRUGS (6)
  1. TRAMADOL (NGX) [Suspect]
     Indication: BACK PAIN
     Dosage: 50 MG, UNK
     Route: 048
     Dates: start: 20090201
  2. SINEMET [Interacting]
     Indication: PARKINSON'S DISEASE
     Dosage: 62.5 MG, QID
     Route: 048
  3. FOSAVANCE [Concomitant]
     Dosage: 70 MG, QW
     Route: 048
  4. LANSOPRAZOLE [Concomitant]
     Dosage: 15 MG, BID
  5. PREGABALIN [Concomitant]
     Dosage: 25 MG, BID
     Dates: end: 20090209
  6. RAMIPRIL [Concomitant]
     Dosage: 2.5 MG, UNK

REACTIONS (9)
  - CONDITION AGGRAVATED [None]
  - CONFUSIONAL STATE [None]
  - DEEP VEIN THROMBOSIS [None]
  - DRUG INEFFECTIVE [None]
  - DRUG INTERACTION [None]
  - DYSPNOEA [None]
  - MENINGITIS [None]
  - PULMONARY EMBOLISM [None]
  - SLEEP DISORDER [None]
